FAERS Safety Report 26127782 (Version 1)
Quarter: 2025Q4

REPORT INFORMATION
  Report Type: Spontaneous
  Country: RU (occurrence: RU)
  Receive Date: 20251206
  Receipt Date: 20251206
  Transmission Date: 20260118
  Serious: Yes (Other)
  Sender: ACCORD
  Company Number: RU-MLMSERVICE-20251119-PI718399-00080-1

PATIENT
  Age: 69 Year
  Sex: Male

DRUGS (3)
  1. CARBIDOPA\LEVODOPA [Suspect]
     Active Substance: CARBIDOPA\LEVODOPA
     Indication: Product used for unknown indication
  2. LEVODOPA [Concomitant]
     Active Substance: LEVODOPA
  3. APIXABAN [Concomitant]
     Active Substance: APIXABAN
     Indication: Atrial fibrillation

REACTIONS (2)
  - Psychomotor hyperactivity [Recovering/Resolving]
  - Condition aggravated [Recovering/Resolving]
